FAERS Safety Report 22172499 (Version 1)
Quarter: 2023Q2

REPORT INFORMATION
  Report Type: Spontaneous
  Country: PL (occurrence: PL)
  Receive Date: 20230404
  Receipt Date: 20230404
  Transmission Date: 20230721
  Serious: Yes (Death, Other)
  Sender: FDA-Public Use
  Company Number: PL-002147023-NVSC2023PL074311

PATIENT
  Age: 39 Year
  Sex: Male

DRUGS (3)
  1. KYMRIAH [Suspect]
     Active Substance: TISAGENLECLEUCEL
     Indication: High-grade B-cell lymphoma
     Dosage: UNK, ONCE/SINGLE
     Route: 042
     Dates: start: 20230118
  2. TOCILIZUMAB [Concomitant]
     Active Substance: TOCILIZUMAB
     Indication: Product used for unknown indication
     Dosage: UNK (NO OF ADMINISTRATIONS- 3)
     Route: 065
  3. GRANULOCYTE COLONY-STIMULATING FACTOR NOS [Concomitant]
     Active Substance: GRANULOCYTE COLONY-STIMULATING FACTOR NOS
     Indication: Product used for unknown indication
     Route: 065

REACTIONS (7)
  - Death [Fatal]
  - B-cell aplasia [Unknown]
  - Cytokine release syndrome [Unknown]
  - Immune effector cell-associated neurotoxicity syndrome [Unknown]
  - Malignant neoplasm progression [Unknown]
  - High-grade B-cell lymphoma [Unknown]
  - Platelet count decreased [Unknown]
